FAERS Safety Report 26167506 (Version 1)
Quarter: 2025Q4

REPORT INFORMATION
  Report Type: Spontaneous
  Country: US (occurrence: None)
  Receive Date: 20251217
  Receipt Date: 20251217
  Transmission Date: 20260117
  Serious: Yes (Other)
  Sender: CHIESI
  Company Number: US-CHIESI-2025CHF08877

PATIENT

DRUGS (1)
  1. MYCAPSSA [Suspect]
     Active Substance: OCTREOTIDE
     Indication: Acromegaly
     Dosage: UNK

REACTIONS (3)
  - Liver injury [Unknown]
  - Biliary obstruction [Unknown]
  - Cholelithiasis [Unknown]
